FAERS Safety Report 18755546 (Version 2)
Quarter: 2021Q1

REPORT INFORMATION
  Report Type: Report from Study
  Country: US (occurrence: US)
  Receive Date: 20210119
  Receipt Date: 20210128
  Transmission Date: 20210419
  Serious: Yes (Life-Threatening, Hospitalization, Other)
  Sender: FDA-Public Use
  Company Number: US-BRISTOL-MYERS SQUIBB COMPANY-BMS-2021-002858

PATIENT
  Age: 62 Year
  Sex: Female

DRUGS (44)
  1. DOXORUBICIN [Suspect]
     Active Substance: DOXORUBICIN
     Indication: T-CELL LYMPHOMA
     Dosage: UNK
     Route: 042
     Dates: start: 20200527, end: 20210110
  2. OXYCODONE [Concomitant]
     Active Substance: OXYCODONE
     Indication: ABDOMINAL PAIN
     Dosage: 5 MILLIGRAM, PRN
     Route: 048
     Dates: start: 20200523
  3. PREDNISONE. [Concomitant]
     Active Substance: PREDNISONE
     Indication: PYREXIA
     Dosage: 50 MILLIGRAM, QD
     Route: 048
     Dates: start: 20200604
  4. DALTEPARIN [Concomitant]
     Active Substance: DALTEPARIN
     Indication: DEEP VEIN THROMBOSIS
     Dosage: 5000 UNIT, QD
     Route: 058
     Dates: start: 20200618
  5. LORATADINE. [Concomitant]
     Active Substance: LORATADINE
     Indication: BONE PAIN
     Dosage: 10 MILLIGRAM, QD
     Route: 048
     Dates: start: 20200824
  6. OLANZAPINE. [Concomitant]
     Active Substance: OLANZAPINE
     Indication: NAUSEA
     Dosage: 5 MILLIGRAM, BID
     Route: 048
     Dates: start: 20201020
  7. CALCIUM GLUCONATE. [Concomitant]
     Active Substance: CALCIUM GLUCONATE
     Indication: HYPOCALCAEMIA
     Dosage: 2 GRAM, PRN
     Route: 042
     Dates: start: 20200528
  8. SENNA [SENNOSIDE A+B] [Concomitant]
     Active Substance: SENNOSIDES A AND B
     Dosage: 8.6 MILLIGRAM, BID
     Route: 048
     Dates: start: 20200731
  9. DRONABINOL. [Concomitant]
     Active Substance: DRONABINOL
     Indication: PRODUCT USED FOR UNKNOWN INDICATION
     Dosage: 5 MILLIGRAM, BID
     Route: 048
     Dates: start: 20200709
  10. ALLOPURINOL. [Concomitant]
     Active Substance: ALLOPURINOL
     Indication: TUMOUR LYSIS SYNDROME
     Dosage: 300 MILLIGRAM, QD
     Route: 048
     Dates: start: 20200523
  11. LOPERAMIDE [Concomitant]
     Active Substance: LOPERAMIDE
     Indication: NAUSEA
     Dosage: 0.5 MILLIGRAM, Q4H, PRN
     Route: 042
     Dates: start: 20200621
  12. ALBUMIN HUMAN [Concomitant]
     Active Substance: ALBUMIN HUMAN
     Indication: OEDEMA
     Dosage: 25 GRAM, PRN
     Route: 042
     Dates: start: 20200523
  13. VINCRISTINE SULFATE. [Suspect]
     Active Substance: VINCRISTINE SULFATE
     Indication: T-CELL LYMPHOMA
     Dosage: UNK
     Route: 042
     Dates: start: 20200527, end: 20210110
  14. MAGNESIUM SULFATE. [Concomitant]
     Active Substance: MAGNESIUM SULFATE
     Indication: BLOOD MAGNESIUM DECREASED
     Dosage: 2 GRAM, PRN
     Route: 042
     Dates: start: 20200523
  15. ONDANSETRON [Concomitant]
     Active Substance: ONDANSETRON
     Dosage: 8 MILLIGRAM, BID, PRN
     Route: 042
     Dates: start: 20200529
  16. TRAMADOL. [Concomitant]
     Active Substance: TRAMADOL
     Indication: ABDOMINAL PAIN
     Dosage: 50 MILLIGRAM, PRN
     Route: 048
     Dates: start: 20200531
  17. DEXTRAN 70;HYPROMELLOSE [Concomitant]
     Indication: DRY EYE
     Dosage: 1 DROP, PRN
     Route: 047
     Dates: start: 20200618
  18. TRAZODONE [Concomitant]
     Active Substance: TRAZODONE HYDROCHLORIDE
     Indication: INSOMNIA
     Dosage: 50 MILLIGRAM, PRN
     Route: 048
     Dates: start: 20200529
  19. PANTOPRAZOLE [Concomitant]
     Active Substance: PANTOPRAZOLE
     Indication: ULCER
     Dosage: 40 MILLIGRAM, QD
     Route: 048
     Dates: start: 20200617
  20. CHLORHEXIDINE [Concomitant]
     Active Substance: CHLORHEXIDINE
     Indication: MUCOSAL INFLAMMATION
     Dosage: 15 MILLILITER, BID
     Route: 048
     Dates: start: 20200523
  21. LEVOFLOXACIN. [Concomitant]
     Active Substance: LEVOFLOXACIN
     Indication: PYREXIA
     Dosage: 750 MILLIGRAM, QD
     Route: 042
     Dates: start: 20200528
  22. CALCIUM CARBONATE. [Concomitant]
     Active Substance: CALCIUM CARBONATE
     Indication: DYSPEPSIA
     Dosage: 1000 MILLIGRAM, PRN
     Route: 048
     Dates: start: 20200522
  23. CALCIUM CHLORIDE. [Concomitant]
     Active Substance: CALCIUM CHLORIDE
     Indication: HYPOCALCAEMIA
     Dosage: 1000 MILLIGRAM, PRN
     Route: 042
     Dates: start: 20200522
  24. POTASSIUM CHLORIDE. [Concomitant]
     Active Substance: POTASSIUM CHLORIDE
     Dosage: 10 MILLIGRAM
     Route: 048
     Dates: start: 20200617
  25. FUROSEMIDE. [Concomitant]
     Active Substance: FUROSEMIDE
     Indication: OEDEMA
     Dosage: 40 MILLIGRAM, PRN
     Route: 042
     Dates: start: 20200523
  26. DOCUSATE [Concomitant]
     Active Substance: DOCUSATE
     Indication: CONSTIPATION
     Dosage: 100 MILLIGRAM, PRN
     Route: 048
     Dates: start: 20200604
  27. MELATONIN [Concomitant]
     Active Substance: MELATONIN
     Indication: INSOMNIA
     Dosage: 3 MILLIGRAM, QD
     Route: 048
     Dates: start: 20200619
  28. NIVOLUMAB [Suspect]
     Active Substance: NIVOLUMAB
     Indication: T-CELL LYMPHOMA
     Dosage: UNK
     Route: 042
     Dates: start: 20200527, end: 20210110
  29. ETOPOSIDE. [Suspect]
     Active Substance: ETOPOSIDE
     Indication: T-CELL LYMPHOMA
     Dosage: UNK
     Route: 042
     Dates: start: 20200527, end: 20210110
  30. PREDNISONE. [Suspect]
     Active Substance: PREDNISONE
     Indication: T-CELL LYMPHOMA
     Dosage: UNK
     Route: 042
     Dates: start: 20200527, end: 20210110
  31. POTASSIUM CHLORIDE. [Concomitant]
     Active Substance: POTASSIUM CHLORIDE
     Dosage: 20 MICROEQUIVALENT, PRN
     Route: 048
     Dates: start: 20200621
  32. CALCIUM GLUCONATE. [Concomitant]
     Active Substance: CALCIUM GLUCONATE
     Dosage: 1 GRAM, PRN
     Route: 042
     Dates: start: 20200531
  33. ACYCLOVIR [ACICLOVIR] [Concomitant]
     Active Substance: ACYCLOVIR
     Dosage: 400 MILLIGRAM, BID
     Route: 048
     Dates: start: 20200729
  34. NORMAL SALINE [Concomitant]
     Active Substance: SODIUM CHLORIDE
     Indication: PRODUCT USED FOR UNKNOWN INDICATION
     Dosage: 1000 MILLILITER, Q8H
     Route: 042
     Dates: start: 20200527
  35. LOPERAMIDE [Concomitant]
     Active Substance: LOPERAMIDE
     Indication: DIARRHOEA
     Dosage: 0.5 MILLIGRAM, Q4H, PRN
     Route: 048
     Dates: start: 20201103
  36. CYCLOPHOSPHAMIDE. [Suspect]
     Active Substance: CYCLOPHOSPHAMIDE
     Indication: T-CELL LYMPHOMA
     Dosage: UNK
     Route: 042
     Dates: start: 20200527, end: 20210110
  37. ONDANSETRON [Concomitant]
     Active Substance: ONDANSETRON
     Indication: NAUSEA
     Dosage: 8 MILLIGRAM, PRN
     Route: 042
     Dates: start: 20200527
  38. CALCIUM CARBONATE. [Concomitant]
     Active Substance: CALCIUM CARBONATE
     Indication: DYSPEPSIA
     Dosage: 500 MILLIGRAM, Q2H
     Route: 048
     Dates: start: 20200731
  39. LORAZEPAM. [Concomitant]
     Active Substance: LORAZEPAM
     Indication: NAUSEA
     Dosage: 1 MILLIGRAM, Q4H, PRN
     Route: 048
     Dates: start: 20200820
  40. POTASSIUM CHLORIDE. [Concomitant]
     Active Substance: POTASSIUM CHLORIDE
     Indication: HYPOKALAEMIA
     Dosage: 20 MILLIEQUIVALENT, PRN
     Route: 042
     Dates: start: 20200522
  41. SENNA [SENNOSIDE A+B] [Concomitant]
     Active Substance: SENNOSIDES A AND B
     Indication: CONSTIPATION
     Dosage: 17.2 MILLIGRAM, NIGHTELY
     Route: 048
     Dates: start: 20200523
  42. ACYCLOVIR [ACICLOVIR] [Concomitant]
     Active Substance: ACYCLOVIR
     Indication: HERPES SIMPLEX
     Dosage: 400 MILLIGRAM, QD
     Route: 048
     Dates: start: 20200523
  43. METRONIDAZOLE. [Concomitant]
     Active Substance: METRONIDAZOLE
     Indication: PYREXIA
     Dosage: 500 MILLIGRAM, Q8H
     Route: 042
     Dates: start: 20200528
  44. MAGNESIUM HYDROXIDE. [Concomitant]
     Active Substance: MAGNESIUM HYDROXIDE
     Indication: CONSTIPATION
     Dosage: 2400 MILLIGRAM, QD
     Route: 048
     Dates: start: 20200731

REACTIONS (6)
  - Swelling [Unknown]
  - Odynophagia [Unknown]
  - Pneumonia [Unknown]
  - Acute respiratory failure [Unknown]
  - T-cell lymphoma recurrent [Unknown]
  - Lymphadenopathy [Unknown]

NARRATIVE: CASE EVENT DATE: 20210105
